FAERS Safety Report 25610375 (Version 1)
Quarter: 2025Q3

REPORT INFORMATION
  Report Type: Spontaneous
  Country: MX (occurrence: MX)
  Receive Date: 20250728
  Receipt Date: 20250728
  Transmission Date: 20251021
  Serious: Yes (Other)
  Sender: CELLTRION
  Company Number: MX-CELLTRION INC.-2025MX024966

PATIENT

DRUGS (7)
  1. RITUXIMAB [Suspect]
     Active Substance: RITUXIMAB
     Indication: Relapsing-remitting multiple sclerosis
     Dates: start: 20220717
  2. RITUXIMAB [Suspect]
     Active Substance: RITUXIMAB
     Dates: start: 20230321
  3. RITUXIMAB [Suspect]
     Active Substance: RITUXIMAB
     Dates: start: 20230906
  4. RITUXIMAB [Suspect]
     Active Substance: RITUXIMAB
     Dates: start: 20240323
  5. RITUXIMAB [Suspect]
     Active Substance: RITUXIMAB
     Indication: Relapsing-remitting multiple sclerosis
     Dates: start: 202106
  6. RITUXIMAB [Suspect]
     Active Substance: RITUXIMAB
     Dates: start: 202107
  7. RITUXIMAB [Suspect]
     Active Substance: RITUXIMAB
     Dates: start: 20220112

REACTIONS (2)
  - Drug-induced liver injury [Recovered/Resolved]
  - Intentional product use issue [Unknown]
